FAERS Safety Report 4614046-1 (Version None)
Quarter: 2005Q1

REPORT INFORMATION
  Report Type: 
  Country: None (occurrence: None)
  Receive Date: 20050316
  Receipt Date: 20050224
  Transmission Date: 20050727
  Serious: Yes (Death, Hospitalization, Other)
  Sender: FDA-Public Use
  Company Number: GBS041216119

PATIENT
  Age: 54 Year
  Sex: Male
  Weight: 106 kg

DRUGS (2)
  1. OLANZAPINE [Suspect]
     Indication: AFFECTIVE DISORDER
     Dosage: 2.5 MG
     Dates: start: 20030301
  2. PAROXETINE HCL [Concomitant]

REACTIONS (13)
  - CEREBRAL ARTERY STENOSIS [None]
  - CEREBRAL ARTERY THROMBOSIS [None]
  - CEREBROVASCULAR ACCIDENT [None]
  - CIRCULATORY COLLAPSE [None]
  - CORONARY ARTERY OCCLUSION [None]
  - DEEP VEIN THROMBOSIS [None]
  - INFLUENZA LIKE ILLNESS [None]
  - LUNG CONSOLIDATION [None]
  - MYOCARDIAL INFARCTION [None]
  - PULMONARY CONGESTION [None]
  - PULMONARY EMBOLISM [None]
  - PULMONARY HYPERTENSION [None]
  - PULMONARY OEDEMA [None]
